FAERS Safety Report 25088016 (Version 1)
Quarter: 2025Q1

REPORT INFORMATION
  Report Type: Report from Study
  Country: NL (occurrence: NL)
  Receive Date: 20250318
  Receipt Date: 20250318
  Transmission Date: 20250409
  Serious: Yes (Other)
  Sender: AUROBINDO
  Company Number: NL-AUROBINDO-AUR-APL-2025-014356

PATIENT

DRUGS (1)
  1. APIXABAN [Suspect]
     Active Substance: APIXABAN
     Indication: Anticoagulant therapy
     Dosage: 5 MILLIGRAM, TWO TIMES A DAY
     Route: 065

REACTIONS (3)
  - Hemiplegia [Unknown]
  - Cerebral ischaemia [Unknown]
  - Drug interaction [Unknown]
